FAERS Safety Report 4838534-8 (Version None)
Quarter: 2005Q4

REPORT INFORMATION
  Report Type: 
  Country: None (occurrence: None)
  Receive Date: 20051123
  Receipt Date: 20051110
  Transmission Date: 20060501
  Serious: Yes (Death, Life-Threatening, Hospitalization)
  Sender: FDA-Public Use
  Company Number: P200500026

PATIENT
  Age: 80 Year
  Sex: Male

DRUGS (1)
  1. PLENAXIS [Suspect]
     Indication: PROSTATE CANCER
     Dosage: INTRAMUSCULAR
     Route: 030

REACTIONS (3)
  - DEHYDRATION [None]
  - FALL [None]
  - FEMUR FRACTURE [None]
